FAERS Safety Report 6732451-4 (Version None)
Quarter: 2010Q2

REPORT INFORMATION
  Report Type: 
  Country: None (occurrence: None)
  Receive Date: 20100519
  Receipt Date: 20100512
  Transmission Date: 20101027
  Serious: Yes (Other)
  Sender: FDA-Public Use
  Company Number: US-ASTRAZENECA-2010SE21687

PATIENT
  Age: 68 Year
  Sex: Female

DRUGS (4)
  1. SYMBICORT [Suspect]
     Indication: COUGH
     Dosage: 160/4.5 MCG, TWO PUFFS
     Route: 055
     Dates: start: 20100405, end: 20100412
  2. SYMBICORT [Suspect]
     Dosage: 160/4.5 MCG, TWO PUFFS
     Route: 055
     Dates: start: 20100506, end: 20100509
  3. LOTENSIN [Concomitant]
     Indication: HYPERTENSION
  4. ASACOL [Concomitant]
     Indication: ABDOMINAL DISCOMFORT

REACTIONS (5)
  - COUGH [None]
  - DRUG INEFFECTIVE [None]
  - IMPAIRED WORK ABILITY [None]
  - MUSCLE SPASMS [None]
  - SYNCOPE [None]
